FAERS Safety Report 22071694 (Version 1)
Quarter: 2023Q1

REPORT INFORMATION
  Report Type: Spontaneous
  Country: US (occurrence: US)
  Receive Date: 20230307
  Receipt Date: 20230307
  Transmission Date: 20230418
  Serious: Yes (Other)
  Sender: FDA-Public Use
  Company Number: US-SAGENT PHARMACEUTICALS-2023SAG000068

PATIENT
  Age: 70 Year
  Sex: Female

DRUGS (1)
  1. OCTREOTIDE ACETATE [Suspect]
     Active Substance: OCTREOTIDE ACETATE
     Indication: Chylothorax
     Dosage: 50MCG/HR
     Route: 065

REACTIONS (3)
  - Cardiac arrest [Unknown]
  - Off label use [Unknown]
  - Drug ineffective for unapproved indication [Unknown]
